FAERS Safety Report 20923793 (Version 2)
Quarter: 2023Q1

REPORT INFORMATION
  Report Type: Other
  Country: JP (occurrence: JP)
  Receive Date: 20220607
  Receipt Date: 20230227
  Transmission Date: 20230417
  Serious: Yes (Other)
  Sender: FDA-Public Use
  Company Number: JP-CHUGAI-2022018637

PATIENT
  Age: 74 Year
  Sex: Female

DRUGS (4)
  1. ATEZOLIZUMAB [Suspect]
     Active Substance: ATEZOLIZUMAB
     Indication: Hepatocellular carcinoma
     Route: 041
     Dates: start: 20210908
  2. ATEZOLIZUMAB [Suspect]
     Active Substance: ATEZOLIZUMAB
     Dosage: 1200 MILLIGRAM, ONCE/4WEEKS?MOST RECENT DOSE: 04/MAR/2022
     Route: 041
     Dates: start: 20220204
  3. ATEZOLIZUMAB [Suspect]
     Active Substance: ATEZOLIZUMAB
     Dosage: 1200 MILLIGRAM
     Route: 041
     Dates: start: 20220404
  4. BEVACIZUMAB [Suspect]
     Active Substance: BEVACIZUMAB
     Indication: Hepatocellular carcinoma
     Dosage: MOST RECENT DOSE: 07/JAN/2022
     Route: 041
     Dates: start: 20210908

REACTIONS (3)
  - Haemorrhage [Not Recovered/Not Resolved]
  - Proteinuria [Not Recovered/Not Resolved]
  - Diabetes mellitus [Not Recovered/Not Resolved]

NARRATIVE: CASE EVENT DATE: 20211105
